FAERS Safety Report 20146127 (Version 1)
Quarter: 2021Q4

REPORT INFORMATION
  Report Type: Spontaneous
  Country: US (occurrence: None)
  Receive Date: 20211203
  Receipt Date: 20211203
  Transmission Date: 20220303
  Serious: Yes (Hospitalization)
  Sender: FDA-Public Use
  Company Number: None

PATIENT
  Age: 31 Year
  Sex: Female
  Weight: 129 kg

DRUGS (1)
  1. VANCOMYCIN [Suspect]
     Active Substance: VANCOMYCIN
     Indication: Osteomyelitis
     Dosage: FREQUENCY : TWICE A DAY;?
     Route: 042
     Dates: start: 20211123, end: 20211129

REACTIONS (4)
  - Drug level increased [None]
  - Blood creatinine increased [None]
  - Blood potassium decreased [None]
  - Laboratory test abnormal [None]

NARRATIVE: CASE EVENT DATE: 20211129
